FAERS Safety Report 25154613 (Version 3)
Quarter: 2025Q2

REPORT INFORMATION
  Report Type: Report from Study
  Country: CH (occurrence: CH)
  Receive Date: 20250403
  Receipt Date: 20250417
  Transmission Date: 20250717
  Serious: Yes (Hospitalization)
  Sender: ALNYLAM PHARMACEUTICALS
  Company Number: CH-ALNYLAM PHARMACEUTICALS, INC.-ALN-2025-002211

PATIENT

DRUGS (2)
  1. GIVLAARI [Suspect]
     Active Substance: GIVOSIRAN SODIUM
     Indication: Porphyria acute
     Dosage: 2.5 MILLIGRAM PER KILOGRAM, MONTHLY
     Route: 065
     Dates: start: 20240916, end: 20240916
  2. GIVLAARI [Suspect]
     Active Substance: GIVOSIRAN SODIUM
     Dosage: 2.5 MILLIGRAM PER KILOGRAM, MONTHLY
     Route: 065
     Dates: start: 20250203, end: 20250203

REACTIONS (3)
  - Vomiting [Recovered/Resolved]
  - Vomiting [Recovered/Resolved]
  - Pregnancy [Unknown]

NARRATIVE: CASE EVENT DATE: 20250101
